FAERS Safety Report 8971290 (Version 2)
Quarter: 2013Q1

REPORT INFORMATION
  Report Type: Spontaneous
  Country: US (occurrence: US)
  Receive Date: 20121218
  Receipt Date: 20130111
  Transmission Date: 20140127
  Serious: Yes (Death, Hospitalization)
  Sender: FDA-Public Use
  Company Number: PHEH2012US024824

PATIENT
  Sex: Female
  Weight: 66.21 kg

DRUGS (2)
  1. AFINITOR [Suspect]
     Indication: BREAST CANCER
  2. EXEMESTANE [Suspect]

REACTIONS (4)
  - Breast cancer [Fatal]
  - Pneumonia aspiration [Unknown]
  - Respiratory failure [Unknown]
  - General physical health deterioration [Unknown]
